FAERS Safety Report 4563001-9 (Version None)
Quarter: 2005Q1

REPORT INFORMATION
  Report Type: 
  Country: None (occurrence: None)
  Receive Date: 20050126
  Receipt Date: 20050114
  Transmission Date: 20050727
  Serious: Yes (Other)
  Sender: FDA-Public Use
  Company Number: 2005014793

PATIENT
  Sex: Female
  Weight: 51.7101 kg

DRUGS (2)
  1. DESITIN DIAPER RASH (ZINC OXIDE) [Suspect]
     Indication: LACERATION
     Dosage: PRN, TOPICAL
     Route: 061
  2. LEVOTHYROXINE SODIUM [Concomitant]

REACTIONS (1)
  - OVARIAN CYST [None]
